FAERS Safety Report 10548958 (Version 1)
Quarter: 2014Q4

REPORT INFORMATION
  Report Type: Other
  Country: MY (occurrence: MY)
  Receive Date: 20141028
  Receipt Date: 20141028
  Transmission Date: 20150529
  Serious: Yes (Other)
  Sender: FDA-Public Use
  Company Number: MY-MYLANLABS-2014M1008125

PATIENT

DRUGS (2)
  1. ZOVILAM [Suspect]
     Active Substance: LAMIVUDINE\ZIDOVUDINE
     Indication: RETROVIRAL INFECTION
     Dosage: UNK DF, QD
     Route: 048
  2. STOCRIN [Suspect]
     Active Substance: EFAVIRENZ
     Indication: RETROVIRAL INFECTION
     Route: 048

REACTIONS (1)
  - Pancytopenia [Not Recovered/Not Resolved]

NARRATIVE: CASE EVENT DATE: 20130715
